FAERS Safety Report 9495872 (Version 3)
Quarter: 2013Q4

REPORT INFORMATION
  Report Type: Spontaneous
  Country: US (occurrence: US)
  Receive Date: 20130903
  Receipt Date: 20131220
  Transmission Date: 20140711
  Serious: No
  Sender: FDA-Public Use
  Company Number: US-009507513-1308USA014291

PATIENT
  Age: 22 Year
  Sex: Female
  Weight: 84.81 kg

DRUGS (1)
  1. IMPLANON [Suspect]
     Indication: CONTRACEPTION
     Dosage: 3 YEAR IMPLANT
     Route: 059
     Dates: start: 20111117

REACTIONS (4)
  - Vaginal discharge [Not Recovered/Not Resolved]
  - Menstruation irregular [Unknown]
  - Weight increased [Unknown]
  - Mood swings [Unknown]
